FAERS Safety Report 9677845 (Version 1)
Quarter: 2013Q4

REPORT INFORMATION
  Report Type: Spontaneous
  Country: US (occurrence: US)
  Receive Date: 20131108
  Receipt Date: 20131108
  Transmission Date: 20140711
  Serious: Yes (Hospitalization, Other)
  Sender: FDA-Public Use
  Company Number: US-JNJFOC-20131100458

PATIENT
  Age: 3 Year
  Sex: Male
  Weight: 12.4 kg

DRUGS (12)
  1. TOPAMAX [Suspect]
     Indication: CONVULSION
     Dosage: 45 MG IN MORNING AND 60 MG IN AFTERNOON
     Route: 048
     Dates: start: 20111108
  2. DEPAKOTE [Suspect]
     Indication: CONVULSION
     Route: 048
     Dates: start: 201204
  3. DEPAKOTE [Suspect]
     Indication: CONVULSION
     Route: 048
     Dates: start: 20120117, end: 201204
  4. VALIUM [Suspect]
     Indication: CONVULSION
     Route: 048
     Dates: start: 20100202, end: 201204
  5. VALIUM [Suspect]
     Indication: CONVULSION
     Route: 048
     Dates: start: 201204
  6. KEPPRA [Concomitant]
     Indication: PRODUCT USED FOR UNKNOWN INDICATION
     Route: 048
     Dates: start: 20100212
  7. POLY-VI-SOL [Concomitant]
     Indication: PRODUCT USED FOR UNKNOWN INDICATION
     Route: 048
     Dates: start: 2010
  8. RANITIDINE [Concomitant]
     Indication: PRODUCT USED FOR UNKNOWN INDICATION
     Route: 048
     Dates: start: 2009
  9. MELATONIN [Concomitant]
     Indication: PRODUCT USED FOR UNKNOWN INDICATION
     Route: 048
     Dates: start: 2009
  10. KLONOPIN [Concomitant]
     Indication: PRODUCT USED FOR UNKNOWN INDICATION
     Route: 065
  11. CLOBAZAM [Concomitant]
     Indication: PRODUCT USED FOR UNKNOWN INDICATION
     Route: 065
  12. MIRALAX [Concomitant]
     Indication: PRODUCT USED FOR UNKNOWN INDICATION
     Route: 065

REACTIONS (7)
  - Joint dislocation [Recovered/Resolved]
  - Muscular weakness [Recovered/Resolved]
  - Lethargy [Recovered/Resolved]
  - Dehydration [Recovered/Resolved]
  - Hypotension [Recovered/Resolved]
  - Somnolence [Unknown]
  - Mental status changes [Unknown]
